FAERS Safety Report 10103274 (Version 1)
Quarter: 2014Q2

REPORT INFORMATION
  Report Type: Spontaneous
  Country: US (occurrence: US)
  Receive Date: 20140424
  Receipt Date: 20140424
  Transmission Date: 20141212
  Serious: Yes (Other)
  Sender: FDA-Public Use
  Company Number: US-PFIZER INC-2014111887

PATIENT
  Age: 69 Year
  Sex: Male

DRUGS (2)
  1. XELJANZ [Suspect]
     Dosage: UNK
     Dates: start: 201403
  2. XELJANZ [Suspect]
     Dosage: UNK
     Dates: end: 20140419

REACTIONS (1)
  - Bladder cancer [Unknown]
